FAERS Safety Report 7420498-4 (Version None)
Quarter: 2011Q2

REPORT INFORMATION
  Report Type: 
  Country: None (occurrence: None)
  Receive Date: 20110418
  Receipt Date: 20110407
  Transmission Date: 20111010
  Serious: Yes (Death, Other)
  Sender: FDA-Public Use
  Company Number: US-BAXTER-2010BH001576

PATIENT
  Age: 62 Year
  Sex: Male

DRUGS (100)
  1. HEPARIN SODIUM INJECTION [Suspect]
     Indication: INDWELLING CATHETER MANAGEMENT
     Route: 040
     Dates: start: 20080116, end: 20080116
  2. HEPARIN SODIUM INJECTION [Suspect]
     Route: 042
  3. HEPARIN SODIUM INJECTION [Suspect]
     Route: 042
  4. HEPARIN SODIUM INJECTION [Suspect]
     Route: 042
  5. HEPARIN SODIUM INJECTION [Suspect]
     Route: 042
  6. HEPARIN SODIUM INJECTION [Suspect]
     Route: 042
  7. HEPARIN SODIUM INJECTION [Suspect]
     Route: 041
     Dates: start: 20080117
  8. HEPARIN SODIUM INJECTION [Suspect]
     Route: 041
     Dates: start: 20080124
  9. HEPARIN SODIUM 1,000 UNITS AND SODIUM CHLORIDE 0.9% [Suspect]
     Indication: COAGULOPATHY
     Route: 041
     Dates: start: 20080116
  10. HEPARIN SODIUM 1,000 UNITS AND SODIUM CHLORIDE 0.9% [Suspect]
     Route: 042
     Dates: start: 20080125
  11. HEPARIN SODIUM INJECTION [Suspect]
     Route: 042
     Dates: start: 20080116
  12. HEPARIN SODIUM INJECTION [Suspect]
     Route: 042
     Dates: start: 20080125
  13. ATORVASTATIN CALCIUM [Concomitant]
     Indication: PRODUCT USED FOR UNKNOWN INDICATION
     Route: 065
  14. CEFTRIAXONE [Concomitant]
     Indication: PRODUCT USED FOR UNKNOWN INDICATION
     Route: 065
  15. DIGOXIN [Concomitant]
     Indication: PRODUCT USED FOR UNKNOWN INDICATION
     Route: 041
  16. EPINEPHRINE [Concomitant]
     Indication: PRODUCT USED FOR UNKNOWN INDICATION
     Route: 065
  17. MUCOMYST                                /USA/ [Concomitant]
     Indication: PRODUCT USED FOR UNKNOWN INDICATION
     Route: 055
  18. BISACODYL [Concomitant]
     Indication: PRODUCT USED FOR UNKNOWN INDICATION
     Route: 065
  19. POTASSIUM CHLORIDE [Concomitant]
     Indication: PRODUCT USED FOR UNKNOWN INDICATION
     Route: 065
  20. HEPARIN SODIUM INJECTION [Suspect]
     Route: 042
     Dates: start: 20080201
  21. HEPARIN SODIUM INJECTION [Suspect]
     Route: 042
  22. HEPARIN SODIUM INJECTION [Suspect]
     Route: 042
     Dates: start: 20080125
  23. HEPARIN SODIUM INJECTION [Suspect]
     Route: 041
     Dates: start: 20080117
  24. HEPARIN SODIUM INJECTION [Suspect]
     Route: 042
     Dates: start: 20080116
  25. HEPARIN SODIUM INJECTION [Suspect]
     Route: 042
     Dates: start: 20080125
  26. BUMEX [Concomitant]
     Indication: PRODUCT USED FOR UNKNOWN INDICATION
     Route: 041
  27. AMINOCAPROIC ACID [Concomitant]
     Indication: PRODUCT USED FOR UNKNOWN INDICATION
     Route: 065
  28. BENZATHINE BENZYLPENICILLIN [Concomitant]
     Indication: PRODUCT USED FOR UNKNOWN INDICATION
     Route: 065
  29. INSULIN [Concomitant]
     Indication: PRODUCT USED FOR UNKNOWN INDICATION
     Route: 065
  30. ONDANSETRON [Concomitant]
     Indication: PRODUCT USED FOR UNKNOWN INDICATION
     Route: 065
  31. PROPOFOL [Concomitant]
     Indication: PRODUCT USED FOR UNKNOWN INDICATION
     Route: 065
  32. HEPARIN SODIUM INJECTION [Suspect]
     Route: 042
  33. HEPARIN SODIUM INJECTION [Suspect]
     Route: 042
     Dates: start: 20080201
  34. HEPARIN SODIUM INJECTION [Suspect]
     Route: 042
  35. HEPARIN SODIUM INJECTION [Suspect]
     Route: 042
  36. HEPARIN SODIUM INJECTION [Suspect]
     Route: 042
     Dates: start: 20080125
  37. HEPARIN SODIUM INJECTION [Suspect]
     Route: 042
     Dates: start: 20080125
  38. HEPARIN SODIUM 1,000 UNITS AND SODIUM CHLORIDE 0.9% [Suspect]
     Indication: VENTRICULAR ASSIST DEVICE INSERTION
     Route: 041
     Dates: start: 20080116
  39. ASPIRIN [Concomitant]
     Indication: PRODUCT USED FOR UNKNOWN INDICATION
     Route: 065
  40. MILRINONE [Concomitant]
     Indication: PRODUCT USED FOR UNKNOWN INDICATION
     Route: 041
  41. SODIUM CHLORIDE [Concomitant]
     Indication: PRODUCT USED FOR UNKNOWN INDICATION
     Route: 065
  42. IPRATROPIUM BROMIDE [Concomitant]
     Indication: PRODUCT USED FOR UNKNOWN INDICATION
     Route: 055
  43. MORPHINE SULFATE [Concomitant]
     Indication: PRODUCT USED FOR UNKNOWN INDICATION
     Route: 065
  44. NEO-SYNEPHRINOL [Concomitant]
     Indication: PRODUCT USED FOR UNKNOWN INDICATION
     Route: 065
  45. XANAX [Concomitant]
     Indication: PRODUCT USED FOR UNKNOWN INDICATION
     Route: 065
  46. HEPARIN SODIUM INJECTION [Suspect]
     Route: 042
     Dates: start: 20080125
  47. HEPARIN SODIUM INJECTION [Suspect]
     Route: 042
     Dates: start: 20080201
  48. HEPARIN SODIUM INJECTION [Suspect]
     Route: 042
     Dates: start: 20080201
  49. HEPARIN SODIUM INJECTION [Suspect]
     Route: 042
     Dates: start: 20080125
  50. HEPARIN SODIUM INJECTION [Suspect]
     Route: 041
     Dates: start: 20080117
  51. HEPARIN SODIUM INJECTION [Suspect]
     Route: 042
     Dates: start: 20080116
  52. POTASSIUM CHLORIDE [Concomitant]
     Indication: PRODUCT USED FOR UNKNOWN INDICATION
     Route: 042
  53. VERSED [Concomitant]
     Indication: PRODUCT USED FOR UNKNOWN INDICATION
     Route: 065
  54. HEPARIN SODIUM INJECTION [Suspect]
     Route: 042
  55. HEPARIN SODIUM INJECTION [Suspect]
     Route: 042
  56. HEPARIN SODIUM INJECTION [Suspect]
     Route: 042
  57. HEPARIN SODIUM INJECTION [Suspect]
     Route: 041
     Dates: start: 20080124
  58. HEPARIN SODIUM 1,000 UNITS AND SODIUM CHLORIDE 0.9% [Suspect]
     Indication: INTRA-AORTIC BALLOON PLACEMENT
     Route: 041
     Dates: start: 20080116
  59. HEPARIN SODIUM 1,000 UNITS AND SODIUM CHLORIDE 0.9% [Suspect]
     Route: 042
     Dates: start: 20080125
  60. PANTOPRAZOLE SODIUM [Concomitant]
     Indication: PRODUCT USED FOR UNKNOWN INDICATION
     Route: 042
  61. VASOPRESSIN AND ANALOGUES [Concomitant]
     Indication: PRODUCT USED FOR UNKNOWN INDICATION
     Route: 041
  62. ACETAMINOPHEN [Concomitant]
     Route: 065
  63. FENTANYL [Concomitant]
     Indication: PRODUCT USED FOR UNKNOWN INDICATION
     Route: 065
  64. HEPARIN SODIUM INJECTION [Suspect]
     Indication: COAGULOPATHY
     Route: 040
     Dates: start: 20080116, end: 20080116
  65. HEPARIN SODIUM INJECTION [Suspect]
     Route: 042
     Dates: start: 20080125
  66. HEPARIN SODIUM INJECTION [Suspect]
     Route: 042
  67. HEPARIN SODIUM INJECTION [Suspect]
     Route: 042
     Dates: start: 20080125
  68. HEPARIN SODIUM INJECTION [Suspect]
     Route: 041
     Dates: start: 20080124
  69. HEPARIN SODIUM INJECTION [Suspect]
     Route: 041
     Dates: start: 20080124
  70. HEPARIN SODIUM 5,000 UNITS IN DEXTROSE 5% [Suspect]
     Indication: VENTRICULAR ASSIST DEVICE INSERTION
     Route: 065
     Dates: start: 20080125
  71. ACETAMINOPHEN [Concomitant]
     Indication: PRODUCT USED FOR UNKNOWN INDICATION
     Route: 065
  72. ANCEF [Concomitant]
     Indication: PRODUCT USED FOR UNKNOWN INDICATION
     Route: 065
  73. LANTUS [Concomitant]
     Indication: PRODUCT USED FOR UNKNOWN INDICATION
     Route: 065
  74. ALBUTEROL [Concomitant]
     Indication: PRODUCT USED FOR UNKNOWN INDICATION
     Route: 055
  75. ATROPINE [Concomitant]
     Indication: PRODUCT USED FOR UNKNOWN INDICATION
     Route: 065
  76. DOBUTAMINE HCL [Concomitant]
     Indication: PRODUCT USED FOR UNKNOWN INDICATION
     Route: 065
  77. HEPARIN SODIUM INJECTION [Suspect]
     Indication: CATHETERISATION CARDIAC
     Route: 040
     Dates: start: 20080116, end: 20080116
  78. HEPARIN SODIUM INJECTION [Suspect]
     Route: 042
     Dates: start: 20080125
  79. HEPARIN SODIUM INJECTION [Suspect]
     Route: 042
  80. HEPARIN SODIUM INJECTION [Suspect]
     Route: 042
     Dates: start: 20080201
  81. HEPARIN SODIUM INJECTION [Suspect]
     Route: 042
  82. HEPARIN SODIUM INJECTION [Suspect]
     Route: 041
     Dates: start: 20080117
  83. HEPARIN SODIUM 1,000 UNITS AND SODIUM CHLORIDE 0.9% [Suspect]
     Route: 042
     Dates: start: 20080125
  84. HEPARIN SODIUM 1,000 UNITS AND SODIUM CHLORIDE 0.9% [Suspect]
     Route: 042
     Dates: start: 20080125
  85. HEPARIN SODIUM INJECTION [Suspect]
     Route: 042
     Dates: start: 20080125
  86. LIPITOR [Concomitant]
     Indication: PRODUCT USED FOR UNKNOWN INDICATION
     Route: 065
  87. URSODIOL [Concomitant]
     Indication: PRODUCT USED FOR UNKNOWN INDICATION
     Route: 065
  88. LORAZEPAM [Concomitant]
     Indication: PRODUCT USED FOR UNKNOWN INDICATION
     Route: 065
  89. HEPARIN SODIUM INJECTION [Suspect]
     Indication: VENTRICULAR ASSIST DEVICE INSERTION
     Route: 040
     Dates: start: 20080116, end: 20080116
  90. HEPARIN SODIUM INJECTION [Suspect]
     Indication: INTRA-AORTIC BALLOON PLACEMENT
     Route: 040
     Dates: start: 20080116, end: 20080116
  91. HEPARIN SODIUM INJECTION [Suspect]
     Route: 042
     Dates: start: 20080125
  92. HEPARIN SODIUM INJECTION [Suspect]
     Route: 042
     Dates: start: 20080125
  93. HEPARIN SODIUM INJECTION [Suspect]
     Route: 041
     Dates: start: 20080117
  94. HEPARIN SODIUM INJECTION [Suspect]
     Route: 041
     Dates: start: 20080124
  95. HEPARIN SODIUM 1,000 UNITS AND SODIUM CHLORIDE 0.9% [Suspect]
     Indication: CATHETERISATION CARDIAC
     Route: 041
     Dates: start: 20080116
  96. COLACE [Concomitant]
     Indication: PRODUCT USED FOR UNKNOWN INDICATION
     Route: 065
  97. DOPAMINE HCL [Concomitant]
     Indication: PRODUCT USED FOR UNKNOWN INDICATION
     Route: 065
  98. GLUCAGON [Concomitant]
     Indication: PRODUCT USED FOR UNKNOWN INDICATION
     Route: 030
  99. FACTOR VIIA [Concomitant]
     Indication: PRODUCT USED FOR UNKNOWN INDICATION
     Route: 065
  100. FLUCONAZOLE [Concomitant]
     Indication: PRODUCT USED FOR UNKNOWN INDICATION
     Route: 065

REACTIONS (32)
  - CARDIOGENIC SHOCK [None]
  - PNEUMONIA STAPHYLOCOCCAL [None]
  - HEPATIC FAILURE [None]
  - THROMBOCYTOPENIA [None]
  - ATRIAL FIBRILLATION [None]
  - ENTEROCOCCAL BACTERAEMIA [None]
  - CARDIAC FAILURE CONGESTIVE [None]
  - SEPSIS [None]
  - SYSTEMIC INFLAMMATORY RESPONSE SYNDROME [None]
  - ABDOMINAL WOUND DEHISCENCE [None]
  - CARDIAC TAMPONADE [None]
  - RESPIRATORY FAILURE [None]
  - RENAL FAILURE ACUTE [None]
  - INFECTION [None]
  - ISCHAEMIC CARDIOMYOPATHY [None]
  - VENTRICULAR TACHYCARDIA [None]
  - NEUROMYOPATHY [None]
  - POST PROCEDURAL HAEMORRHAGE [None]
  - SYSTEMIC CANDIDA [None]
  - LATENT SYPHILIS [None]
  - PNEUMONITIS [None]
  - LIVER DISORDER [None]
  - MULTI-ORGAN FAILURE [None]
  - CARDIOMYOPATHY [None]
  - GASTROINTESTINAL HAEMORRHAGE [None]
  - DELIRIUM [None]
  - CHOLELITHIASIS [None]
  - PULMONARY HYPERTENSION [None]
  - CLOSTRIDIUM DIFFICILE COLITIS [None]
  - ADRENAL INSUFFICIENCY [None]
  - HERPES ZOSTER [None]
  - PLATELET COUNT ABNORMAL [None]
